FAERS Safety Report 5853144-1 (Version None)
Quarter: 2008Q3

REPORT INFORMATION
  Report Type: 
  Country: None (occurrence: None)
  Receive Date: 20080821
  Receipt Date: 20080819
  Transmission Date: 20090109
  Serious: Yes (Hospitalization)
  Sender: FDA-Public Use
  Company Number: NL-BOEHRINGER INGELHEIM GMBH, GERMANY-2008-DE-04890GD

PATIENT
  Age: 61 Year
  Sex: Male

DRUGS (5)
  1. NEVIRAPINE [Suspect]
     Indication: HIV INFECTION
     Dates: start: 19980101, end: 20070601
  2. LAMIVUDINE [Suspect]
     Indication: HIV INFECTION
     Dates: start: 19980101, end: 20070601
  3. ABACAVIR [Suspect]
     Indication: HIV INFECTION
     Dates: end: 20070601
  4. VALPROIC ACID [Concomitant]
  5. COTRIMOXAZOLE [Concomitant]

REACTIONS (8)
  - DIARRHOEA [None]
  - HYPERSENSITIVITY [None]
  - MUSCLE RIGIDITY [None]
  - MYALGIA [None]
  - MYOGLOBINURIA [None]
  - PYREXIA [None]
  - RASH [None]
  - RHABDOMYOLYSIS [None]
